FAERS Safety Report 15044517 (Version 22)
Quarter: 2019Q3

REPORT INFORMATION
  Report Type: Spontaneous
  Country: CA (occurrence: CA)
  Receive Date: 20180621
  Receipt Date: 20190927
  Transmission Date: 20191004
  Serious: Yes (Hospitalization, Other)
  Sender: FDA-Public Use
  Company Number: CA-CELLTRION INC.-2018CA020608

PATIENT

DRUGS (29)
  1. INFLECTRA [Suspect]
     Active Substance: INFLIXIMAB-DYYB
     Dosage: 400 MG, EVERY 4 WEEKS
     Route: 042
     Dates: start: 20190723, end: 20190723
  2. INFLECTRA [Suspect]
     Active Substance: INFLIXIMAB-DYYB
     Dosage: 400 MG, EVERY 4 WEEKS
     Route: 042
     Dates: start: 20190917
  3. ACETAMINOPHEN. [Concomitant]
     Active Substance: ACETAMINOPHEN
     Dosage: 500 MG, UNK
     Dates: start: 20190917
  4. HYDROCORTISONE. [Concomitant]
     Active Substance: HYDROCORTISONE
     Indication: PREMEDICATION
     Dosage: 100 MG, UNK
     Dates: start: 20190917
  5. INFLECTRA [Suspect]
     Active Substance: INFLIXIMAB-DYYB
     Dosage: 400 MG ON WEEK 2, 6 THEN EVERY 8 WEEKS
     Route: 042
     Dates: start: 20180723, end: 20180723
  6. INFLECTRA [Suspect]
     Active Substance: INFLIXIMAB-DYYB
     Dosage: 400 MG, EVERY 4 WEEKS
     Route: 042
     Dates: start: 20190304, end: 20190304
  7. SOLU-MEDROL [Concomitant]
     Active Substance: METHYLPREDNISOLONE SODIUM SUCCINATE
     Dosage: UNK
     Route: 042
  8. INFLECTRA [Suspect]
     Active Substance: INFLIXIMAB-DYYB
     Indication: COLITIS ULCERATIVE
     Dosage: 400 MG ON WEEK 2, 6 THEN EVERY 8 WEEKS
     Route: 042
     Dates: start: 20180527, end: 20190103
  9. INFLECTRA [Suspect]
     Active Substance: INFLIXIMAB-DYYB
     Dosage: 400 MG ON WEEK 2, 6 THEN EVERY 8 WEEKS
     Route: 042
     Dates: start: 20180910, end: 20180910
  10. INFLECTRA [Suspect]
     Active Substance: INFLIXIMAB-DYYB
     Dosage: 400 MG, EVERY 4 WEEKS
     Route: 042
     Dates: start: 20190626, end: 20190626
  11. VENTOLIN [Concomitant]
     Active Substance: ALBUTEROL SULFATE
     Dosage: UNK
     Route: 065
  12. INFLECTRA [Suspect]
     Active Substance: INFLIXIMAB-DYYB
     Dosage: 400 MG ON WEEK 2, 6 THEN EVERY 8 WEEKS
     Route: 042
     Dates: start: 20181105, end: 20181105
  13. INFLECTRA [Suspect]
     Active Substance: INFLIXIMAB-DYYB
     Dosage: 400 MG, EVERY 4 WEEKS
     Route: 042
     Dates: start: 20190529, end: 20190529
  14. VENTOL [Concomitant]
     Dosage: UNK
     Route: 065
  15. INFLECTRA [Suspect]
     Active Substance: INFLIXIMAB-DYYB
     Dosage: 400 MG ON WEEK 2, 6 THEN EVERY 8 WEEKS
     Route: 042
     Dates: start: 20180612, end: 20180612
  16. INFLECTRA [Suspect]
     Active Substance: INFLIXIMAB-DYYB
     Dosage: 400 MG ON WEEK 2, 6 THEN EVERY 8 WEEKS
     Route: 042
     Dates: start: 20190103, end: 20190103
  17. INFLECTRA [Suspect]
     Active Substance: INFLIXIMAB-DYYB
     Dosage: 400 MG, EVERY 4 WEEKS
     Route: 042
     Dates: start: 20190201, end: 20190201
  18. INFLECTRA [Suspect]
     Active Substance: INFLIXIMAB-DYYB
     Dosage: 400 MG, EVERY 4 WEEKS
     Route: 042
     Dates: start: 20190402, end: 20190402
  19. METRONIDAZOLE. [Concomitant]
     Active Substance: METRONIDAZOLE
     Dosage: UNK
     Route: 065
  20. FERROUS GLUCONATE [Concomitant]
     Active Substance: FERROUS GLUCONATE
     Dosage: UNK
     Route: 065
  21. INFLECTRA [Suspect]
     Active Substance: INFLIXIMAB-DYYB
     Dosage: 400 MG ON WEEK 2, 6 THEN EVERY 8 WEEKS
     Route: 042
     Dates: start: 20180723, end: 20180723
  22. INFLECTRA [Suspect]
     Active Substance: INFLIXIMAB-DYYB
     Dosage: 400 MG, EVERY 4 WEEKS
     Route: 042
     Dates: start: 20190820, end: 20190820
  23. METHOTREXATE. [Concomitant]
     Active Substance: METHOTREXATE
     Dosage: UNK
     Route: 065
  24. MESALAMINE. [Concomitant]
     Active Substance: MESALAMINE
     Dosage: 4.8 G, DAILY
     Dates: start: 201804
  25. DIPHENHYDRAMINE. [Concomitant]
     Active Substance: DIPHENHYDRAMINE
     Indication: PREMEDICATION
     Dosage: 50 MG, UNK
  26. PREDNISONE. [Concomitant]
     Active Substance: PREDNISONE
     Dosage: UNK
  27. INFLECTRA [Suspect]
     Active Substance: INFLIXIMAB-DYYB
     Dosage: 400 MG ON WEEK 2, 6 THEN EVERY 8 WEEKS
     Route: 042
     Dates: start: 20180612, end: 20180612
  28. INFLECTRA [Suspect]
     Active Substance: INFLIXIMAB-DYYB
     Dosage: 400 MG, EVERY 4 WEEKS
     Route: 042
     Dates: start: 20190430, end: 20190430
  29. ACETAMINOPHEN. [Concomitant]
     Active Substance: ACETAMINOPHEN
     Indication: PREMEDICATION
     Dosage: 500 MG, UNK

REACTIONS (28)
  - Drug level decreased [Unknown]
  - Abdominal pain upper [Unknown]
  - Weight decreased [Unknown]
  - Pain [Unknown]
  - Fatigue [Unknown]
  - Gait disturbance [Not Recovered/Not Resolved]
  - Body temperature fluctuation [Unknown]
  - Condition aggravated [Not Recovered/Not Resolved]
  - Blood iron decreased [Unknown]
  - Headache [Recovered/Resolved]
  - Pruritus [Recovered/Resolved]
  - Pain in extremity [Unknown]
  - Back pain [Unknown]
  - Dysphagia [Unknown]
  - Malaise [Unknown]
  - Arthralgia [Not Recovered/Not Resolved]
  - Drug specific antibody absent [Unknown]
  - Loss of personal independence in daily activities [Unknown]
  - Nausea [Unknown]
  - Ovarian cyst [Unknown]
  - Peripheral swelling [Unknown]
  - Vasculitis [Unknown]
  - Heart rate irregular [Unknown]
  - Dizziness [Unknown]
  - Mobility decreased [Not Recovered/Not Resolved]
  - Condition aggravated [Not Recovered/Not Resolved]
  - Off label use [Unknown]
  - Inappropriate schedule of product administration [Unknown]

NARRATIVE: CASE EVENT DATE: 20180612
